FAERS Safety Report 8785662 (Version 1)
Quarter: 2012Q4

REPORT INFORMATION
  Report Type: 
  Country: US (occurrence: US)
  Receive Date: 20120914
  Receipt Date: 20120914
  Transmission Date: 20130627
  Serious: Yes (Other)
  Sender: FDA-Public Use
  Company Number: US-UCBSA-065367

PATIENT
  Age: 67 Year
  Sex: Male

DRUGS (3)
  1. VIMPAT [Suspect]
     Indication: GRAND MAL CONVULSION
     Dosage: 100 MG
     Dates: start: 20111027
  2. DEPAKOTE [Concomitant]
     Dosage: 3 GM/DAY
  3. CARBATROL [Concomitant]
     Dosage: 500 MG/DAY

REACTIONS (4)
  - Encephalopathy [Unknown]
  - Delirium [Unknown]
  - Agitation [Unknown]
  - Asterixis [Unknown]
